FAERS Safety Report 7060244-X (Version None)
Quarter: 2010Q4

REPORT INFORMATION
  Report Type: 
  Country: None (occurrence: None)
  Receive Date: 20101025
  Receipt Date: 20101019
  Transmission Date: 20110411
  Serious: Yes (Other)
  Sender: FDA-Public Use
  Company Number: US-BRISTOL-MYERS SQUIBB COMPANY-15345937

PATIENT
  Age: 90 Year
  Sex: Female

DRUGS (7)
  1. METFORMIN HCL [Suspect]
     Indication: DIABETES MELLITUS
     Dates: end: 20100422
  2. DILTIAZEM HCL [Concomitant]
  3. LEXAPRO [Concomitant]
  4. DIGOXIN [Concomitant]
  5. LEVOXYL [Concomitant]
  6. GLIMEPIRIDE [Concomitant]
  7. DYAZIDE [Concomitant]

REACTIONS (1)
  - RENAL FAILURE [None]
